FAERS Safety Report 6544709-2 (Version None)
Quarter: 2010Q1

REPORT INFORMATION
  Report Type: 
  Country: None (occurrence: None)
  Receive Date: 20100121
  Receipt Date: 20100121
  Transmission Date: 20100710
  Serious: Yes (Life-Threatening, Hospitalization)
  Sender: FDA-Public Use
  Company Number: PHHO2009SE00448

PATIENT
  Sex: Male
  Weight: 95 kg

DRUGS (2)
  1. ALISKIREN ALI+TAB [Suspect]
     Indication: ACUTE MYOCARDIAL INFARCTION
     Dosage: 300 MG, QD
     Route: 048
     Dates: start: 20080917, end: 20090102
  2. SULFONAMIDES [Concomitant]

REACTIONS (19)
  - ASTHENIA [None]
  - BLOOD CREATININE INCREASED [None]
  - CYANOSIS [None]
  - DEHYDRATION [None]
  - DIARRHOEA [None]
  - ELECTROLYTE IMBALANCE [None]
  - GASTROENTERITIS [None]
  - HEPATIC ENZYME INCREASED [None]
  - HYPONATRAEMIA [None]
  - HYPOTENSION [None]
  - HYPOVOLAEMIA [None]
  - MYALGIA [None]
  - PALLOR [None]
  - PYREXIA [None]
  - RENAL FAILURE ACUTE [None]
  - RENIN-ANGIOTENSIN SYSTEM INHIBITION [None]
  - URINE OUTPUT DECREASED [None]
  - VIRAL INFECTION [None]
  - WEIGHT DECREASED [None]
